FAERS Safety Report 6250563-9 (Version None)
Quarter: 2009Q2

REPORT INFORMATION
  Report Type: 
  Country: None (occurrence: None)
  Receive Date: 20090630
  Receipt Date: 20090630
  Transmission Date: 20091009
  Serious: Yes (Death)
  Sender: FDA-Public Use
  Company Number: US-PFIZER INC-2009213546

PATIENT
  Sex: Male

DRUGS (9)
  1. NORVASC [Suspect]
     Dosage: 10 MG, 1X/DAY
  2. LIPITOR [Suspect]
     Dosage: 40 MG, 1X/DAY
  3. PLAVIX [Concomitant]
     Dosage: 75 MG, UNK
  4. PREVACID [Concomitant]
     Dosage: 30 MG, UNK
  5. PROVENTIL GENTLEHALER [Concomitant]
  6. TRAMADOL [Concomitant]
  7. METFORMIN [Concomitant]
  8. COREG [Concomitant]
  9. QVAR 40 [Concomitant]

REACTIONS (1)
  - DEATH [None]
